FAERS Safety Report 7907084-4 (Version None)
Quarter: 2011Q4

REPORT INFORMATION
  Report Type: 
  Country: None (occurrence: None)
  Receive Date: 20111110
  Receipt Date: 20110826
  Transmission Date: 20120403
  Serious: No
  Sender: FDA-Public Use
  Company Number: US-ASTRAZENECA-2011SE51875

PATIENT

DRUGS (6)
  1. LISINOPRIL [Suspect]
     Route: 048
  2. AMBIEN [Concomitant]
  3. JANUVIA [Concomitant]
  4. ATENOLOL [Concomitant]
  5. LEVOTHROID [Concomitant]
  6. TRIA/HCTZ [Concomitant]
     Dosage: 37.5/25

REACTIONS (2)
  - DRUG HYPERSENSITIVITY [None]
  - ADVERSE DRUG REACTION [None]
